FAERS Safety Report 20240354 (Version 2)
Quarter: 2022Q1

REPORT INFORMATION
  Report Type: Report from Study
  Country: NL (occurrence: NL)
  Receive Date: 20211228
  Receipt Date: 20220105
  Transmission Date: 20220423
  Serious: Yes (Hospitalization, Other)
  Sender: FDA-Public Use
  Company Number: NL-VER-202100175

PATIENT
  Age: 72 Year
  Sex: Male
  Weight: 75 kg

DRUGS (2)
  1. TRIPTORELIN PAMOATE [Suspect]
     Active Substance: TRIPTORELIN PAMOATE
     Indication: Prostate cancer
     Dosage: START DATE: 22-NOV-2019
     Route: 030
     Dates: end: 20210629
  2. XGEVA [Suspect]
     Active Substance: DENOSUMAB
     Indication: Product used for unknown indication
     Dosage: START DATE: 29-JUL-2021
     Route: 065

REACTIONS (9)
  - Blood calcium decreased [Not Recovered/Not Resolved]
  - Delirium [Unknown]
  - Spinal cord injury [Not Recovered/Not Resolved]
  - Pain [Unknown]
  - General physical health deterioration [Unknown]
  - Pneumonia [Not Recovered/Not Resolved]
  - Sepsis [Unknown]
  - Terminal state [Not Recovered/Not Resolved]
  - Urinary tract infection [Not Recovered/Not Resolved]

NARRATIVE: CASE EVENT DATE: 20210101
